FAERS Safety Report 9297783 (Version 2)
Quarter: 2013Q2

REPORT INFORMATION
  Report Type: Report from Study
  Country: US (occurrence: US)
  Receive Date: 20130520
  Receipt Date: 20130610
  Transmission Date: 20140414
  Serious: Yes (Other)
  Sender: FDA-Public Use
  Company Number: PHEH2013US010844

PATIENT
  Age: 71 Year
  Sex: Male

DRUGS (23)
  1. ZOMETA [Suspect]
     Indication: PLASMA CELL MYELOMA
     Dosage: 4 MG, MONTHLY
     Route: 042
     Dates: start: 20110318, end: 20120921
  2. REVLIMID [Concomitant]
     Dosage: UNK UKN, UNK
  3. CYTOXAN [Concomitant]
     Dosage: UNK UKN, UNK
  4. DEXAMETHASONE [Concomitant]
     Dosage: UNK UKN, UNK
  5. VELCADE [Concomitant]
     Route: 042
  6. ALTACE [Concomitant]
  7. COUMADINE [Concomitant]
  8. COREG [Concomitant]
  9. FLOMAX [Concomitant]
  10. LANOXIN [Concomitant]
  11. MAGNESIUM [Concomitant]
  12. MVI [Concomitant]
  13. CALCIFEROL VIT D [Concomitant]
  14. COMPAZINE [Concomitant]
  15. VICODIN [Concomitant]
  16. LANTUS [Concomitant]
  17. OMEPRAZOLE [Concomitant]
  18. NOVOLOG [Concomitant]
  19. AVODART [Concomitant]
  20. BACTRIM DS [Concomitant]
  21. NEURONTIN [Concomitant]
  22. DECADRON [Concomitant]
  23. CALCIUM + VIT D [Concomitant]

REACTIONS (3)
  - Osteonecrosis of jaw [Not Recovered/Not Resolved]
  - Exposed bone in jaw [Not Recovered/Not Resolved]
  - Oral pain [Not Recovered/Not Resolved]
